FAERS Safety Report 8324798 (Version 10)
Quarter: 2012Q4

REPORT INFORMATION
  Report Type: Spontaneous
  Country: ES (occurrence: None)
  Receive Date: 20111222
  Receipt Date: 20120919
  Transmission Date: 20130627
  Serious: Yes (Death, Life-Threatening, Hospitalization)
  Sender: FDA-Public Use
  Company Number: EU-2011-10281

PATIENT
  Age: 68 Year
  Sex: Male
  Weight: 59 kg

DRUGS (23)
  1. SAMSCA [Suspect]
     Indication: HYPONATRAEMIA
     Route: 048
     Dates: start: 20111127, end: 20111202
  2. SAMSCA [Suspect]
     Indication: INAPPROPRIATE ANTIDIURETIC HORMONE SECRETION
     Route: 048
     Dates: start: 20111127, end: 20111202
  3. WARFARIN SODIUM [Concomitant]
  4. OMEPRAZOLE [Concomitant]
  5. CITALOPRAM HYDROBROMIDE [Concomitant]
  6. LORAZEPAM [Concomitant]
  7. ACETAMINOPHEN [Concomitant]
  8. ASPIRIN [Concomitant]
  9. CLOPIDOGREL [Concomitant]
  10. ATORVASTATIN [Concomitant]
  11. CARVEDILOL [Concomitant]
  12. RAMIPRIL [Concomitant]
  13. ESPIRONOLACTON (SPIRONOLACTONE) [Concomitant]
  14. TAMSULOSIN HYDROCHLORIDE [Concomitant]
  15. TORSEMIDE [Concomitant]
  16. HYDROCORTONE [Concomitant]
  17. SULPIRIDE (SULPIRIDE) [Concomitant]
  18. CIPROFLOXACIN [Concomitant]
  19. AMIODARONE HYDROCHLORIDE [Concomitant]
  20. BUDESONIDE (BUDESONIDE) [Concomitant]
  21. IPRATROPIUM (IPRATROPIUM) [Concomitant]
  22. PANTOPRAZOLE (PANTOPRAZOLE) [Concomitant]
  23. OXYGEN (OXYGEN) [Concomitant]

REACTIONS (12)
  - Respiratory failure [None]
  - Mallory-Weiss syndrome [None]
  - Cardiac failure acute [None]
  - Pleural effusion [None]
  - Hepatic congestion [None]
  - Cystitis [None]
  - Urinary tract infection [None]
  - Haematemesis [None]
  - Abdominal pain upper [None]
  - Alkalosis hypokalaemic [None]
  - Hyperbilirubinaemia [None]
  - Pneumonia aspiration [None]
